FAERS Safety Report 9823840 (Version 2)
Quarter: 2014Q1

REPORT INFORMATION
  Report Type: Spontaneous
  Country: US (occurrence: US)
  Receive Date: 20140116
  Receipt Date: 20140116
  Transmission Date: 20141002
  Serious: No
  Sender: FDA-Public Use
  Company Number: US-GILEAD-2011-0040059

PATIENT
  Age: 43 Year
  Sex: Female

DRUGS (2)
  1. LETAIRIS [Suspect]
     Indication: PRODUCT USED FOR UNKNOWN INDICATION
     Route: 048
     Dates: start: 20110110
  2. LASIX [Concomitant]

REACTIONS (8)
  - Swelling [Not Recovered/Not Resolved]
  - Joint stiffness [Unknown]
  - Wheezing [Unknown]
  - Tachycardia [Not Recovered/Not Resolved]
  - Arthralgia [Unknown]
  - Cough [Unknown]
  - Dyspnoea [Unknown]
  - Fluid retention [Unknown]
